FAERS Safety Report 7411471-0 (Version None)
Quarter: 2011Q2

REPORT INFORMATION
  Report Type: 
  Country: None (occurrence: None)
  Receive Date: 20110413
  Receipt Date: 20110406
  Transmission Date: 20111010
  Serious: Yes (Death)
  Sender: FDA-Public Use
  Company Number: PHHY2011PL27638

PATIENT
  Sex: Female
  Weight: 60 kg

DRUGS (1)
  1. ZOMETA [Suspect]
     Indication: METASTASES TO BONE
     Dosage: 4 MG I.V. EVERY 28 DAYS
     Route: 042

REACTIONS (4)
  - METASTASES TO LIVER [None]
  - NEOPLASM MALIGNANT [None]
  - METASTASES TO BONE [None]
  - METASTASES TO CENTRAL NERVOUS SYSTEM [None]
